FAERS Safety Report 5118861-X (Version None)
Quarter: 2006Q3

REPORT INFORMATION
  Report Type: 
  Country: None (occurrence: None)
  Receive Date: 20060927
  Receipt Date: 20060915
  Transmission Date: 20061208
  Serious: Yes (Hospitalization)
  Sender: FDA-Public Use
  Company Number: T200600983

PATIENT
  Age: 74 Year
  Sex: Male
  Weight: 69.8 kg

DRUGS (8)
  1. METHADONE HYDROCHLORIDE [Suspect]
     Indication: PAIN
     Dosage: 10 MG SINGLE ORAL
     Route: 048
     Dates: start: 20060829, end: 20060829
  2. METHADONE HYDROCHLORIDE [Suspect]
     Indication: PAIN
     Dosage: 50 MG (5 X 10 MG TABLETS) BID ORAL
     Route: 048
     Dates: start: 20030101
  3. ACTOS [Concomitant]
  4. FLOMAX (MORNIFLUMATE) [Concomitant]
  5. ACIPHEX [Concomitant]
  6. LISINOPRIL [Concomitant]
  7. ADVIL [Concomitant]
  8. MULTIVITAMIN [Concomitant]

REACTIONS (3)
  - AMNESIA [None]
  - CONVULSION [None]
  - PHARMACEUTICAL PRODUCT COMPLAINT [None]
